FAERS Safety Report 4668136-8 (Version None)
Quarter: 2005Q2

REPORT INFORMATION
  Report Type: 
  Country: None (occurrence: None)
  Receive Date: 20050521
  Receipt Date: 20041121
  Transmission Date: 20051028
  Serious: Yes (Other)
  Sender: FDA-Public Use
  Company Number: PHBS2004ES15709

PATIENT
  Age: 67 Year
  Sex: Female

DRUGS (7)
  1. PAMIDRONATE DISODIUM [Suspect]
     Indication: MULTIPLE MYELOMA
     Route: 042
  2. BUSULFAN [Concomitant]
     Route: 065
  3. MELPHALAN [Concomitant]
     Route: 065
  4. CYCLOPHOSPHAMIDE [Concomitant]
     Route: 065
  5. INTERFERON [Concomitant]
     Route: 065
  6. DEXAMETASON [Concomitant]
     Route: 065
  7. THALIDOMIDE [Concomitant]
     Route: 065

REACTIONS (8)
  - ASEPTIC NECROSIS BONE [None]
  - BONE DISORDER [None]
  - FISTULA [None]
  - METASTASES TO SPINE [None]
  - OSTEOMYELITIS CHRONIC [None]
  - PAIN IN JAW [None]
  - PURULENCE [None]
  - TOOTH EXTRACTION [None]
